FAERS Safety Report 5049711-8 (Version None)
Quarter: 2006Q3

REPORT INFORMATION
  Report Type: 
  Country: None (occurrence: None)
  Receive Date: 20060707
  Receipt Date: 20060623
  Transmission Date: 20061208
  Serious: Yes (Death)
  Sender: FDA-Public Use
  Company Number: 2006BI009077

PATIENT
  Age: 51 Year
  Sex: Female
  Weight: 45.3597 kg

DRUGS (9)
  1. AVONEX [Suspect]
     Indication: MULTIPLE SCLEROSIS
     Dosage: 30 UG;QW;IM
     Route: 030
     Dates: start: 20051111
  2. POTASSIUM [Concomitant]
  3. NEURONTIN [Concomitant]
  4. TRICOR [Concomitant]
  5. ECOTRIN [Concomitant]
  6. FOLIC ACID [Concomitant]
  7. VITAMIN B12 INJECTION [Concomitant]
  8. VALIUM [Concomitant]
  9. MULTI-VITAMIN [Concomitant]

REACTIONS (1)
  - CARDIAC ARREST [None]
